FAERS Safety Report 18683024 (Version 3)
Quarter: 2021Q1

REPORT INFORMATION
  Report Type: Report from Study
  Country: CA (occurrence: CA)
  Receive Date: 20201230
  Receipt Date: 20210120
  Transmission Date: 20210419
  Serious: Yes (Life-Threatening)
  Sender: FDA-Public Use
  Company Number: CA-AMGEN-CANSL2020192111

PATIENT
  Age: 58 Year
  Sex: Male
  Weight: 84 kg

DRUGS (4)
  1. MVASI [Suspect]
     Active Substance: BEVACIZUMAB-AWWB
     Indication: GLIOBLASTOMA
     Dosage: 410 MILLIGRAM, Q2WK
     Route: 042
     Dates: start: 2020
  2. MVASI [Suspect]
     Active Substance: BEVACIZUMAB-AWWB
     Dosage: 5 MILLIGRAM/KILOGRAM, Q2WK
     Route: 042
     Dates: start: 2020
  3. MVASI [Suspect]
     Active Substance: BEVACIZUMAB-AWWB
     Indication: MALIGNANT GLIOMA
     Dosage: 410 MILLIGRAM, Q2WK
     Route: 042
     Dates: start: 20201123
  4. MVASI [Suspect]
     Active Substance: BEVACIZUMAB-AWWB
     Dosage: 410 MILLIGRAM, Q2WK
     Route: 042
     Dates: start: 20201221

REACTIONS (5)
  - Off label use [Unknown]
  - Fatigue [Unknown]
  - Depression [Not Recovered/Not Resolved]
  - Hypersensitivity [Unknown]
  - Ill-defined disorder [Unknown]

NARRATIVE: CASE EVENT DATE: 2020
